FAERS Safety Report 10456514 (Version 1)
Quarter: 2014Q3

REPORT INFORMATION
  Report Type: Spontaneous
  Country: US (occurrence: None)
  Receive Date: 20140915
  Receipt Date: 20140915
  Transmission Date: 20150326
  Serious: No
  Sender: FDA-Public Use
  Company Number: None

PATIENT

DRUGS (1)
  1. HYDROMORPHONE HCL [Suspect]
     Active Substance: HYDROMORPHONE HYDROCHLORIDE
     Dosage: INJECTABLE, INJECTION, 2 MG/ML,  VIAL 1 ML
     Route: 042

REACTIONS (3)
  - Circumstance or information capable of leading to medication error [None]
  - Physical product label issue [None]
  - Product label issue [None]
